FAERS Safety Report 7788715-9 (Version None)
Quarter: 2011Q3

REPORT INFORMATION
  Report Type: 
  Country: None (occurrence: None)
  Receive Date: 20110930
  Receipt Date: 20110929
  Transmission Date: 20111222
  Serious: Yes (Death, Hospitalization, Other)
  Sender: FDA-Public Use
  Company Number: JP-BAYER-2011-092152

PATIENT
  Age: 61 Year
  Sex: Male
  Weight: 61 kg

DRUGS (13)
  1. NEXAVAR [Suspect]
     Dosage: 800 MG, QD
     Route: 048
     Dates: start: 20101028, end: 20101130
  2. GASTROM [Concomitant]
     Dosage: 3 G, QD
     Route: 048
  3. FERRUM [Concomitant]
     Dosage: 100 MG, QD
     Route: 048
     Dates: end: 20101111
  4. LIVACT [Concomitant]
     Dosage: 12.45 G, QD
     Route: 048
  5. NEXAVAR [Suspect]
     Dosage: 400 MG, QD
     Route: 048
     Dates: start: 20101201, end: 20101207
  6. UREPEARL [Concomitant]
     Dosage: UNK
     Route: 061
     Dates: start: 20101028
  7. NEXAVAR [Suspect]
     Indication: HEPATIC NEOPLASM MALIGNANT
     Dosage: 800 MG, QD
     Route: 048
     Dates: start: 20110322, end: 20110405
  8. MYSER [Concomitant]
     Dosage: UNK
     Route: 061
     Dates: start: 20101118
  9. CANDESARTAN CILEXETIL [Concomitant]
     Dosage: 8 MG, QD
     Route: 048
     Dates: start: 20101105
  10. NEXAVAR [Suspect]
     Dosage: 400 MG, QD
     Route: 048
     Dates: start: 20101217
  11. LASIX [Concomitant]
     Dosage: 20 MG, QD
     Route: 048
  12. LANSOPRAZOLE [Concomitant]
     Dosage: 30 MG, QD
     Route: 048
  13. ALLOID G [Concomitant]
     Dosage: 60 ML, QD
     Route: 048

REACTIONS (6)
  - HYPERTENSION [None]
  - MELAENA [None]
  - HYPERAMMONAEMIA [None]
  - LUNG DISORDER [None]
  - PALMAR-PLANTAR ERYTHRODYSAESTHESIA SYNDROME [None]
  - DIARRHOEA [None]
